FAERS Safety Report 10272542 (Version 1)
Quarter: 2014Q2

REPORT INFORMATION
  Report Type: Spontaneous
  Country: CA (occurrence: None)
  Receive Date: 20140630
  Receipt Date: 20140630
  Transmission Date: 20141212
  Serious: Yes (Death)
  Sender: FDA-Public Use
  Company Number: FK201402508

PATIENT
  Age: 39 Year
  Sex: Female

DRUGS (3)
  1. INDOMETHACIN [Suspect]
     Indication: PRODUCT USED FOR UNKNOWN INDICATION
     Dosage: 50 TABLETS (1250 MG), ORAL
     Route: 048
  2. COLCHICINE (COLCHICINE) [Suspect]
     Indication: PRODUCT USED FOR UNKNOWN INDICATION
     Dosage: 40 TABLETS (25 MG), ORAL
     Route: 048
  3. ZOPICLONE (ZOPICLONE) [Suspect]
     Indication: PRODUCT USED FOR UNKNOWN INDICATION
     Dosage: 10 TABLETS (75 MG), ORAL
     Route: 048

REACTIONS (17)
  - Multi-organ failure [None]
  - Toxicity to various agents [None]
  - Nausea [None]
  - Abdominal pain [None]
  - Diarrhoea [None]
  - Exposure via ingestion [None]
  - Intentional overdose [None]
  - Metabolic acidosis [None]
  - Respiratory distress [None]
  - Agitation [None]
  - Febrile neutropenia [None]
  - Septic shock [None]
  - Tachycardia [None]
  - Tachypnoea [None]
  - Hypotension [None]
  - Renal failure acute [None]
  - Nephropathy toxic [None]
